FAERS Safety Report 26088775 (Version 2)
Quarter: 2025Q4

REPORT INFORMATION
  Report Type: Spontaneous
  Country: AU (occurrence: AU)
  Receive Date: 20251125
  Receipt Date: 20251212
  Transmission Date: 20260117
  Serious: Yes (Other)
  Sender: Harrow Health
  Company Number: AU-Novartis Pharma-NVSC2025AU177386

PATIENT
  Sex: Female

DRUGS (2)
  1. MAXIDEX [Suspect]
     Active Substance: DEXAMETHASONE
     Indication: Product used for unknown indication
  2. AZARGA [Suspect]
     Active Substance: BRINZOLAMIDE\TIMOLOL MALEATE
     Indication: Glaucoma
     Dosage: UNK UNK, BID

REACTIONS (3)
  - Visual impairment [Unknown]
  - Product container issue [Unknown]
  - Product packaging quantity issue [Unknown]
